FAERS Safety Report 6587926-8 (Version None)
Quarter: 2010Q1

REPORT INFORMATION
  Report Type: 
  Country: None (occurrence: None)
  Receive Date: 20100218
  Receipt Date: 20100208
  Transmission Date: 20100710
  Serious: Yes (Hospitalization, Disabling, Other)
  Sender: FDA-Public Use
  Company Number: US-ELI_LILLY_AND_COMPANY-US200910003580

PATIENT
  Sex: Male

DRUGS (3)
  1. PROZAC [Suspect]
     Indication: DEPRESSION
     Dosage: 20 MG, DAILY (1/D)
     Route: 065
     Dates: start: 19910101, end: 19910501
  2. KLONOPIN [Concomitant]
     Dosage: 0.5 MG, UNK
  3. LITHIUM [Concomitant]

REACTIONS (19)
  - ABNORMAL BEHAVIOUR [None]
  - AGGRESSION [None]
  - AMNESIA [None]
  - ANGER [None]
  - BRAIN INJURY [None]
  - DEVELOPMENTAL DELAY [None]
  - DISABILITY [None]
  - EYE DISORDER [None]
  - GROWTH RETARDATION [None]
  - HEAD INJURY [None]
  - HOMICIDAL IDEATION [None]
  - HOSPITALISATION [None]
  - MANIA [None]
  - MUSCLE TWITCHING [None]
  - PERSONALITY CHANGE [None]
  - PHYSICAL ASSAULT [None]
  - POST-TRAUMATIC STRESS DISORDER [None]
  - SUICIDAL IDEATION [None]
  - TARDIVE DYSKINESIA [None]
